FAERS Safety Report 9322928 (Version 2)
Quarter: 2013Q4

REPORT INFORMATION
  Report Type: Spontaneous
  Country: GB (occurrence: GB)
  Receive Date: 20130603
  Receipt Date: 20131014
  Transmission Date: 20140711
  Serious: Yes (Hospitalization)
  Sender: FDA-Public Use
  Company Number: GB-009507513-1305GBR016887

PATIENT
  Age: 71 Year
  Sex: Male
  Weight: 85 kg

DRUGS (13)
  1. DEXAMETHASONE [Suspect]
     Indication: PROPHYLAXIS OF NAUSEA AND VOMITING
     Dosage: 4 MG, 2/ 1 DAYS
     Route: 048
     Dates: start: 20121003, end: 20121208
  2. FLUOROURACIL [Suspect]
     Indication: PANCREATIC CARCINOMA
     Dosage: 4600 MG, CYCLICAL
     Route: 042
     Dates: start: 20121003, end: 20121207
  3. FLUOROURACIL [Suspect]
     Indication: PANCREATIC CARCINOMA
     Dosage: 800 MG, DOSAGES/INTERVAL: NOT REPORTED
     Route: 042
     Dates: start: 20121003, end: 20121207
  4. FLUOROURACIL [Suspect]
     Dosage: UNK
  5. IRINOTECAN HYDROCHLORIDE [Suspect]
     Indication: PANCREATIC CARCINOMA
     Dosage: 370 MG, CYCLICAL
     Route: 042
     Dates: start: 20121003, end: 20121205
  6. OXALIPLATIN [Suspect]
     Indication: PANCREATIC CARCINOMA
     Dosage: 180 MG,CYCLICAL
     Route: 042
     Dates: start: 20121003, end: 20121205
  7. AMLODIPINE [Concomitant]
  8. CIPROFLOXACIN [Concomitant]
  9. CREON (PANCREATIN) [Concomitant]
  10. DOMPERIDONE [Concomitant]
  11. FOLINIC ACID [Concomitant]
  12. GRANISETRON [Concomitant]
  13. LEVOTHYROXINE SODIUM [Concomitant]

REACTIONS (3)
  - Hypomania [Recovered/Resolved with Sequelae]
  - Depressed mood [Unknown]
  - Malaise [Unknown]
